FAERS Safety Report 13224830 (Version 2)
Quarter: 2017Q1

REPORT INFORMATION
  Report Type: Spontaneous
  Country: US (occurrence: US)
  Receive Date: 20170213
  Receipt Date: 20170306
  Transmission Date: 20170428
  Serious: No
  Sender: FDA-Public Use
  Company Number: US-HORIZON-RAV-0044-2017

PATIENT
  Age: 4 Year
  Sex: Female

DRUGS (2)
  1. PRO-PHREE [Concomitant]
  2. RAVICTI [Suspect]
     Active Substance: GLYCEROL PHENYLBUTYRATE
     Indication: ARGININOSUCCINATE LYASE DEFICIENCY
     Dosage: 1.5 ML TID
     Dates: start: 20150416

REACTIONS (2)
  - Alopecia [Unknown]
  - Nasopharyngitis [Unknown]
